FAERS Safety Report 5893363-1 (Version None)
Quarter: 2008Q3

REPORT INFORMATION
  Report Type: 
  Country: None (occurrence: None)
  Receive Date: 20080922
  Receipt Date: 20080922
  Transmission Date: 20090109
  Serious: Yes (Other)
  Sender: FDA-Public Use
  Company Number: None

PATIENT
  Sex: Male
  Weight: 73.9363 kg

DRUGS (1)
  1. PROVENTIL-HFA [Suspect]
     Indication: ASTHMA
     Dosage: 90MCG 8 /DAY

REACTIONS (1)
  - DRUG EFFECT DECREASED [None]
